FAERS Safety Report 12085679 (Version 1)
Quarter: 2016Q1

REPORT INFORMATION
  Report Type: Spontaneous
  Country: US (occurrence: US)
  Receive Date: 20160217
  Receipt Date: 20160217
  Transmission Date: 20160526
  Serious: Yes (Death)
  Sender: FDA-Public Use
  Company Number: US-LANTHEUS-LMI-2016-00062

PATIENT
  Age: 93 Year
  Sex: Male
  Weight: 68 kg

DRUGS (20)
  1. DEFINITY [Suspect]
     Active Substance: PERFLUTREN
     Indication: ECHOCARDIOGRAM
     Dosage: 1.1 MG/ML UNDILUTED DEFINITY
     Route: 040
     Dates: start: 20150116, end: 20150116
  2. PRIMAXIN IV [Concomitant]
     Active Substance: CILASTATIN SODIUM\IMIPENEM
     Indication: PRODUCT USED FOR UNKNOWN INDICATION
     Dosage: 250 MG PRIMAXIN IN 50 ML 0.9% SODIUM CHLORIDE IVPB
     Route: 042
     Dates: start: 20150116, end: 20150116
  3. PACERONE [Concomitant]
     Active Substance: AMIODARONE HYDROCHLORIDE
     Indication: ATRIAL FIBRILLATION
     Route: 048
     Dates: end: 20160116
  4. DOPAMINE [Concomitant]
     Active Substance: DOPAMINE\DOPAMINE HYDROCHLORIDE
     Indication: PRODUCT USED FOR UNKNOWN INDICATION
     Dosage: 10 MCG/KG/MIN
     Route: 041
     Dates: start: 20150224, end: 20150224
  5. DOPAMINE [Concomitant]
     Active Substance: DOPAMINE\DOPAMINE HYDROCHLORIDE
     Dosage: 15 MCG/KG/MIN
     Route: 041
     Dates: start: 20150224, end: 20150224
  6. LEVOPHED [Concomitant]
     Active Substance: NOREPINEPHRINE BITARTRATE
     Indication: PRODUCT USED FOR UNKNOWN INDICATION
     Dosage: 1 MCG/MIN (8 MG LEVOPHED IN 250 ML NORMAL SALINE)
     Route: 042
     Dates: start: 20150113, end: 20160116
  7. PROTONIX [Concomitant]
     Active Substance: PANTOPRAZOLE SODIUM
     Indication: PRODUCT USED FOR UNKNOWN INDICATION
     Dosage: 40 MG PROTONIX IN 50 ML 0.9% SODIUM CHLORIDE IVPB
     Route: 042
     Dates: end: 20150116
  8. DEXTROSE. [Concomitant]
     Active Substance: DEXTROSE
     Indication: PRODUCT USED FOR UNKNOWN INDICATION
     Dosage: ONCE
     Route: 040
  9. CALCIUM GLUCONATE. [Concomitant]
     Active Substance: CALCIUM GLUCONATE
     Indication: PRODUCT USED FOR UNKNOWN INDICATION
     Dosage: 1 G CALCIUM GLUCONATE IN 50 ML 0.9% SODIUM CHLORIDE IVPB EVERY 4 HOURS
     Route: 042
  10. SODIUM CHLORIDE. [Concomitant]
     Active Substance: SODIUM CHLORIDE
     Indication: PRODUCT USED FOR UNKNOWN INDICATION
     Route: 042
  11. DEXTROSE. [Concomitant]
     Active Substance: DEXTROSE
     Dosage: ONCE
     Route: 040
  12. LEVOPHED [Concomitant]
     Active Substance: NOREPINEPHRINE BITARTRATE
     Dosage: 14 MCG/MIN (8 MG LEVOPHED IN 250 ML NORMAL SALINE)
     Route: 042
     Dates: start: 20150116, end: 20160116
  13. FENTANYL. [Concomitant]
     Active Substance: FENTANYL
     Dosage: 50 MCG/HR (25 MCG/ML FENTANYL IN 100 ML NORMAL SALINE)
     Route: 042
     Dates: start: 20150116, end: 20150116
  14. CIPRO [Concomitant]
     Active Substance: CIPROFLOXACIN HYDROCHLORIDE
     Indication: PRODUCT USED FOR UNKNOWN INDICATION
     Dosage: 400 MG CIPRO IN 200 ML D5W IVPB
     Route: 042
     Dates: start: 20150116, end: 20150116
  15. GLUTOSE [Concomitant]
     Active Substance: DEXTROSE
     Indication: PRODUCT USED FOR UNKNOWN INDICATION
     Dosage: ONCE
     Route: 048
  16. GLUCAGON. [Concomitant]
     Active Substance: GLUCAGON
     Indication: PRODUCT USED FOR UNKNOWN INDICATION
     Dosage: ONCE
     Route: 030
  17. HUMALOG [Concomitant]
     Active Substance: INSULIN LISPRO
     Indication: PRODUCT USED FOR UNKNOWN INDICATION
     Dosage: 2-12 UNITS, 100 UNIT/ML, TID AC
     Route: 058
  18. FENTANYL. [Concomitant]
     Active Substance: FENTANYL
     Indication: PRODUCT USED FOR UNKNOWN INDICATION
     Dosage: 25 MCG/HR (25 MCG/ML FENTANYL IN 100 ML NORMAL SALINE)
     Route: 042
     Dates: start: 20150113, end: 20160116
  19. FENTANYL. [Concomitant]
     Active Substance: FENTANYL
     Dosage: 50 MCG/ML
     Route: 040
  20. MYCOSTATIN [Concomitant]
     Active Substance: NYSTATIN
     Indication: PRODUCT USED FOR UNKNOWN INDICATION
     Dosage: 100,000 UNIT/GRAM
     Route: 061

REACTIONS (3)
  - Sepsis [Fatal]
  - Multiple organ dysfunction syndrome [Fatal]
  - Cardiac arrest [Fatal]

NARRATIVE: CASE EVENT DATE: 20150224
